FAERS Safety Report 7775800-0 (Version None)
Quarter: 2011Q3

REPORT INFORMATION
  Report Type: 
  Country: None (occurrence: None)
  Receive Date: 20110921
  Receipt Date: 20110913
  Transmission Date: 20111222
  Serious: Yes (Hospitalization)
  Sender: FDA-Public Use
  Company Number: 2011SP043246

PATIENT
  Age: 37 Year
  Sex: Female

DRUGS (1)
  1. CERAZETTE (DESOGESTREL/ 00754001/) [Suspect]
     Indication: CONTRACEPTION
     Dosage: 0.075 MG;QD;PO
     Route: 048
     Dates: start: 20110701, end: 20110820

REACTIONS (3)
  - LOSS OF CONSCIOUSNESS [None]
  - MALAISE [None]
  - PULMONARY EMBOLISM [None]
